FAERS Safety Report 4475952-4 (Version None)
Quarter: 2004Q4

REPORT INFORMATION
  Report Type: 
  Country: None (occurrence: None)
  Receive Date: 20041012
  Receipt Date: 20041001
  Transmission Date: 20050328
  Serious: Yes (Other)
  Sender: FDA-Public Use
  Company Number: US-2004-032889

PATIENT
  Sex: Female

DRUGS (1)
  1. CLIMARA [Suspect]
     Dosage: TRANSDERMAL
     Route: 062
     Dates: start: 19950101

REACTIONS (1)
  - CAROTID ARTERY DISEASE [None]
